FAERS Safety Report 10684439 (Version 1)
Quarter: 2014Q4

REPORT INFORMATION
  Report Type: Spontaneous
  Country: GB (occurrence: GB)
  Receive Date: 20141231
  Receipt Date: 20141231
  Transmission Date: 20150529
  Serious: Yes (Hospitalization, Disabling)
  Sender: FDA-Public Use
  Company Number: GB-ACCORD-027636

PATIENT
  Age: 57 Year
  Sex: Male
  Weight: 132 kg

DRUGS (10)
  1. RAMIPRIL. [Suspect]
     Active Substance: RAMIPRIL
     Indication: CARDIAC DISORDER
  2. WARFARIN [Concomitant]
     Active Substance: WARFARIN
  3. ALLOPURINOL. [Concomitant]
     Active Substance: ALLOPURINOL
  4. SIMVASTATIN. [Concomitant]
     Active Substance: SIMVASTATIN
  5. ACETYLSALICYLIC ACID [Concomitant]
     Active Substance: ASPIRIN
  6. SPIRONOLACTONE. [Concomitant]
     Active Substance: SPIRONOLACTONE
  7. INDOMETACIN [Concomitant]
     Active Substance: INDOMETHACIN
  8. BISOPROLOL [Concomitant]
     Active Substance: BISOPROLOL
  9. DIGOXIN. [Concomitant]
     Active Substance: DIGOXIN
  10. LANSOPRAZOLE. [Concomitant]
     Active Substance: LANSOPRAZOLE

REACTIONS (1)
  - Anal ulcer [Recovered/Resolved]
